FAERS Safety Report 10902540 (Version 1)
Quarter: 2015Q1

REPORT INFORMATION
  Report Type: Report from Study
  Country: NL (occurrence: NL)
  Receive Date: 20150310
  Receipt Date: 20150310
  Transmission Date: 20150721
  Serious: Yes (Other)
  Sender: FDA-Public Use
  Company Number: NL-WATSON-2015-04272

PATIENT
  Age: 48 Year
  Sex: Female

DRUGS (9)
  1. DACARBAZINE. [Suspect]
     Active Substance: DACARBAZINE
     Dosage: 1500 MG, CYCLICAL
     Route: 042
     Dates: start: 201204, end: 201204
  2. MORPHINE [Concomitant]
     Active Substance: MORPHINE
     Indication: PRODUCT USED FOR UNKNOWN INDICATION
     Dosage: UNK, UNKNOWN
     Route: 065
  3. FENTANYL. [Suspect]
     Active Substance: FENTANYL
     Dosage: UNK UNK, DAILY
     Route: 062
     Dates: start: 20120612, end: 201206
  4. FENTANYL. [Suspect]
     Active Substance: FENTANYL
     Dosage: 50 MCG/HR, DAILY
     Route: 062
     Dates: start: 2009, end: 20120611
  5. DACARBAZINE. [Suspect]
     Active Substance: DACARBAZINE
     Dosage: 1200 MG, CYCLICAL
     Route: 042
     Dates: start: 201205, end: 201206
  6. FENTANYL. [Suspect]
     Active Substance: FENTANYL
     Indication: ABDOMINAL PAIN
     Dosage: UNK UNK, DAILY
     Route: 062
     Dates: start: 201206
  7. DACARBAZINE. [Suspect]
     Active Substance: DACARBAZINE
     Dosage: 2000 MG, CYCLICAL
     Route: 042
     Dates: start: 20120320, end: 20120320
  8. GABAPENTINE [Concomitant]
     Active Substance: GABAPENTIN
     Indication: PAIN IN EXTREMITY
     Dosage: UNK, UNKNOWN
     Route: 048
     Dates: start: 20120508
  9. DACARBAZINE. [Suspect]
     Active Substance: DACARBAZINE
     Indication: SOFT TISSUE SARCOMA
     Dosage: 600 MG, CYCLICAL
     Route: 042
     Dates: start: 2012, end: 20121218

REACTIONS (1)
  - Toxicity to various agents [Recovered/Resolved]

NARRATIVE: CASE EVENT DATE: 20120613
